FAERS Safety Report 8129942-0 (Version None)
Quarter: 2012Q1

REPORT INFORMATION
  Report Type: 
  Country: None (occurrence: None)
  Receive Date: 20120210
  Receipt Date: 20120206
  Transmission Date: 20120608
  Serious: Yes (Death)
  Sender: FDA-Public Use
  Company Number: IT-ROCHE-1037472

PATIENT
  Sex: Male

DRUGS (3)
  1. FLUOROURACIL [Concomitant]
     Indication: PRODUCT USED FOR UNKNOWN INDICATION
     Dates: start: 20110831, end: 20110928
  2. BEVACIZUMAB [Suspect]
     Indication: COLON CANCER STAGE IV
     Dates: start: 20110831, end: 20110928
  3. OXALIPLATIN [Concomitant]
     Indication: PRODUCT USED FOR UNKNOWN INDICATION
     Dates: start: 20110831, end: 20110928

REACTIONS (2)
  - ISCHAEMIA [None]
  - BRAIN OEDEMA [None]
